FAERS Safety Report 5660344-2 (Version None)
Quarter: 2008Q1

REPORT INFORMATION
  Report Type: 
  Country: None (occurrence: None)
  Receive Date: 20080311
  Receipt Date: 20071001
  Transmission Date: 20080703
  Serious: No
  Sender: FDA-Public Use
  Company Number: US-BAYER-200713179BCC

PATIENT
  Sex: Male
  Weight: 61 kg

DRUGS (4)
  1. ALEVE [Suspect]
     Indication: ARTHRALGIA
     Dosage: TOTAL DAILY DOSE: 880 MG  UNIT DOSE: 220 MG
     Route: 048
  2. ATENOLOL [Concomitant]
  3. MECLIZINE [Concomitant]
  4. ONE A DAY ESSENTIAL VITAMIN [Concomitant]

REACTIONS (1)
  - ARTHRALGIA [None]
